FAERS Safety Report 12604421 (Version 2)
Quarter: 2016Q3

REPORT INFORMATION
  Report Type: Spontaneous
  Country: US (occurrence: US)
  Receive Date: 20160728
  Receipt Date: 20160907
  Transmission Date: 20161109
  Serious: No
  Sender: FDA-Public Use
  Company Number: US-GLAXOSMITHKLINE-US2016108457

PATIENT
  Age: 48 Year
  Sex: Male

DRUGS (2)
  1. TRANSDERM SCOP [Suspect]
     Active Substance: SCOPOLAMINE
     Indication: MOTION SICKNESS
     Dosage: UNK
     Dates: start: 201604
  2. TRANSDERM SCOP [Suspect]
     Active Substance: SCOPOLAMINE
     Dosage: UNK

REACTIONS (9)
  - Drug ineffective [Unknown]
  - Application site irritation [Not Recovered/Not Resolved]
  - Malaise [Unknown]
  - Immune system disorder [Unknown]
  - Nausea [Unknown]
  - Application site scab [Unknown]
  - Administration site bruise [Unknown]
  - Vomiting [Unknown]
  - Product quality issue [Unknown]
